FAERS Safety Report 7419539-X (Version None)
Quarter: 2011Q2

REPORT INFORMATION
  Report Type: 
  Country: None (occurrence: None)
  Receive Date: 20110412
  Receipt Date: 20110412
  Transmission Date: 20111010
  Serious: Yes (Death)
  Sender: FDA-Public Use
  Company Number: None

PATIENT
  Age: 73 Year
  Sex: Male

DRUGS (12)
  1. ALLOPURINOL [Concomitant]
  2. DECADRON [Concomitant]
  3. DIGOXIN [Concomitant]
  4. DEXAMETHASONE 0.5MG TAB [Suspect]
     Indication: MULTIPLE MYELOMA
     Dosage: 5MG QD 5D/WK ORALLY
     Route: 048
  5. GLIPIZIDE [Concomitant]
  6. LISINOPRIL [Concomitant]
  7. AMIODARONE [Concomitant]
  8. WARFARIN [Concomitant]
  9. REVLIMID [Suspect]
     Indication: MULTIPLE MYELOMA
     Dosage: 10MG QD 21D/28D ORALLY
     Route: 048
     Dates: start: 20110323, end: 20110330
  10. METOPROLOL [Concomitant]
  11. PRAVASTATIN [Concomitant]
  12. LASIX [Concomitant]

REACTIONS (2)
  - CARDIAC ARREST [None]
  - HYPOXIC-ISCHAEMIC ENCEPHALOPATHY [None]
